FAERS Safety Report 21368240 (Version 1)
Quarter: 2022Q3

REPORT INFORMATION
  Report Type: Report from Study
  Country: MX (occurrence: MX)
  Receive Date: 20220923
  Receipt Date: 20220923
  Transmission Date: 20221027
  Serious: Yes (Death, Other)
  Sender: FDA-Public Use
  Company Number: MX-BRISTOL-MYERS SQUIBB COMPANY-2022-110285

PATIENT
  Age: 75 Year
  Sex: Female
  Weight: 65 kg

DRUGS (1)
  1. ORENCIA [Suspect]
     Active Substance: ABATACEPT
     Indication: Rheumatoid arthritis
     Dosage: WEEKLY
     Route: 058
     Dates: start: 20170717, end: 20220818

REACTIONS (2)
  - Post-acute COVID-19 syndrome [Fatal]
  - Lung disorder [Fatal]

NARRATIVE: CASE EVENT DATE: 20220818
